FAERS Safety Report 11872367 (Version 1)
Quarter: 2015Q4

REPORT INFORMATION
  Report Type: Spontaneous
  Country: US (occurrence: US)
  Receive Date: 20151228
  Receipt Date: 20151228
  Transmission Date: 20160305
  Serious: Yes (Other)
  Sender: FDA-Public Use
  Company Number: US-BAYER-2015-493397

PATIENT
  Age: 36 Year
  Sex: Female
  Weight: 98.87 kg

DRUGS (17)
  1. INSULIN INJECTION [Concomitant]
     Active Substance: INSULIN NOS
  2. COREG [Concomitant]
     Active Substance: CARVEDILOL
  3. LASIX [Concomitant]
     Active Substance: FUROSEMIDE
  4. POTASSIUM [Concomitant]
     Active Substance: POTASSIUM
  5. COZAAR [Concomitant]
     Active Substance: LOSARTAN POTASSIUM
  6. LANTUS [Concomitant]
     Active Substance: INSULIN GLARGINE
  7. RANITIDINE [Concomitant]
     Active Substance: RANITIDINE\RANITIDINE HYDROCHLORIDE
  8. SEROQUEL [Concomitant]
     Active Substance: QUETIAPINE FUMARATE
  9. RIFAMPIN. [Concomitant]
     Active Substance: RIFAMPIN
  10. NORCO [Concomitant]
     Active Substance: ACETAMINOPHEN\HYDROCODONE BITARTRATE
  11. LEVOFLOXACIN. [Concomitant]
     Active Substance: LEVOFLOXACIN
  12. CYMBALTA [Concomitant]
     Active Substance: DULOXETINE HYDROCHLORIDE
  13. YASMIN [Suspect]
     Active Substance: DROSPIRENONE\ETHINYL ESTRADIOL
  14. IRON [Concomitant]
     Active Substance: IRON
  15. OMEGA 3 FISH OIL [Concomitant]
     Active Substance: FISH OIL\OMEGA-3 FATTY ACIDS
  16. FLAGYL [Concomitant]
     Active Substance: METRONIDAZOLE\METRONIDAZOLE HYDROCHLORIDE
  17. NOVOLOG [Concomitant]
     Active Substance: INSULIN ASPART

REACTIONS (3)
  - Cerebrovascular accident [None]
  - Embolism arterial [None]
  - Transient ischaemic attack [None]

NARRATIVE: CASE EVENT DATE: 2009
